FAERS Safety Report 8153715-6 (Version None)
Quarter: 2012Q1

REPORT INFORMATION
  Report Type: 
  Country: None (occurrence: None)
  Receive Date: 20120221
  Receipt Date: 20120216
  Transmission Date: 20120608
  Serious: Yes (Other)
  Sender: FDA-Public Use
  Company Number: US-PFIZER INC-2012038117

PATIENT
  Sex: Male
  Weight: 69.388 kg

DRUGS (10)
  1. LYRICA [Suspect]
     Indication: NEURALGIA
     Dosage: 150 MG, 1X/DAY AT BED TIME
     Route: 048
     Dates: start: 20120210, end: 20120212
  2. MELOXICAM [Suspect]
     Dosage: 7.5 MG, UNK
  3. SIMVASTATIN [Concomitant]
     Indication: BLOOD CHOLESTEROL INCREASED
     Dosage: 20 MG, DAILY
  4. GLYBURIDE [Concomitant]
     Indication: DIABETES MELLITUS
     Dosage: 5 MG, DAILY
  5. IBUPROFEN [Suspect]
     Dosage: UNK
  6. CO-Q-10 [Concomitant]
     Dosage: UNK
  7. CARVEDILOL [Concomitant]
     Indication: HYPERTENSION
     Dosage: 6.25 MG, 2X/DAY
  8. ACETYLSALICYLIC ACID [Concomitant]
     Indication: CARDIAC DISORDER
     Dosage: 81 MG, 2X/DAY
  9. XALATAN [Concomitant]
     Dosage: UNK
  10. FENTANYL [Concomitant]
     Indication: NEUROPATHY PERIPHERAL
     Dosage: UNK

REACTIONS (6)
  - CEREBROVASCULAR ACCIDENT [None]
  - GASTRITIS [None]
  - VISUAL IMPAIRMENT [None]
  - DIZZINESS [None]
  - INTRAOCULAR PRESSURE INCREASED [None]
  - DIPLOPIA [None]
